FAERS Safety Report 11531724 (Version 1)
Quarter: 2015Q3

REPORT INFORMATION
  Report Type: Spontaneous
  Country: US (occurrence: US)
  Receive Date: 20150903
  Receipt Date: 20150903
  Transmission Date: 20151125
  Serious: No
  Sender: FDA-Public Use
  Company Number: US-ELI_LILLY_AND_COMPANY-US201110005331

PATIENT
  Age: 56 Year
  Sex: Female

DRUGS (4)
  1. HUMALOG [Suspect]
     Active Substance: INSULIN LISPRO
     Indication: DIABETES MELLITUS
     Dosage: 20 U, EACH MORNING
     Dates: start: 200909
  2. HUMALOG [Suspect]
     Active Substance: INSULIN LISPRO
     Dosage: 30 U, OTHER
     Dates: start: 200909
  3. HUMALOG [Suspect]
     Active Substance: INSULIN LISPRO
     Dosage: 30 U, EACH EVENING
     Dates: start: 200909
  4. LANTUS [Concomitant]
     Active Substance: INSULIN GLARGINE
     Dosage: 90 U, UNK

REACTIONS (5)
  - Vertigo positional [Unknown]
  - Vision blurred [Unknown]
  - Blood glucose decreased [Unknown]
  - Nausea [Unknown]
  - Tremor [Unknown]

NARRATIVE: CASE EVENT DATE: 200909
